FAERS Safety Report 10259715 (Version 2)
Quarter: 2014Q3

REPORT INFORMATION
  Report Type: Spontaneous
  Country: US (occurrence: US)
  Receive Date: 20140625
  Receipt Date: 20140718
  Transmission Date: 20150326
  Serious: No
  Sender: FDA-Public Use
  Company Number: US-PFIZER INC-2014171204

PATIENT
  Sex: Female

DRUGS (4)
  1. CLINDAMYCIN HCL [Suspect]
     Active Substance: CLINDAMYCIN HYDROCHLORIDE
     Indication: ABSCESS ORAL
     Dosage: 300 MG, 3X/DAY
     Dates: start: 20140614, end: 201406
  2. VANCOMYCIN [Concomitant]
     Active Substance: VANCOMYCIN
     Indication: ABSCESS ORAL
  3. ZITHROMAX [Concomitant]
     Active Substance: AZITHROMYCIN DIHYDRATE
     Indication: ABSCESS ORAL
  4. CLINDAMYCIN HCL [Suspect]
     Active Substance: CLINDAMYCIN HYDROCHLORIDE
     Indication: ORAL INFECTION
     Dosage: 300 MG (ONLY FOR THREE DAYS), 2X/DAY
     Dates: start: 201406

REACTIONS (4)
  - Intentional product misuse [Unknown]
  - Constipation [Unknown]
  - Abnormal faeces [Unknown]
  - Rectal tenesmus [Unknown]

NARRATIVE: CASE EVENT DATE: 201406
